FAERS Safety Report 11099186 (Version 1)
Quarter: 2015Q2

REPORT INFORMATION
  Report Type: Spontaneous
  Country: JP (occurrence: None)
  Receive Date: 20150506
  Receipt Date: 20150506
  Transmission Date: 20150821
  Serious: Yes (Hospitalization)
  Sender: FDA-Public Use
  Company Number: FK201502079

PATIENT
  Age: 4 Year
  Sex: Female

DRUGS (5)
  1. MERCAPTOPURINE (MERCAPTOPURINE) [Concomitant]
     Active Substance: MERCAPTOPURINE
  2. CYTARABINE (CYTARABINE) [Concomitant]
     Active Substance: CYTARABINE
  3. VINCRISTINE (VINCRISTINE) [Concomitant]
     Active Substance: VINCRISTINE
  4. DEXAMETHASONE (DEXAMETHASONE) [Concomitant]
     Active Substance: DEXAMETHASONE
  5. METHOTREXATE (MANUFACTURER UNKNOWN) (METHOTREXATE) (METHOTREXATE) [Suspect]
     Active Substance: METHOTREXATE
     Indication: ACUTE LYMPHOCYTIC LEUKAEMIA
     Dosage: 1 G/M3 X 4 (HIGH DOSE)
     Route: 037

REACTIONS (1)
  - Encephalomyelitis [None]
